FAERS Safety Report 9460735 (Version 1)
Quarter: 2013Q3

REPORT INFORMATION
  Report Type: Spontaneous
  Country: CA (occurrence: CA)
  Receive Date: 20130815
  Receipt Date: 20130815
  Transmission Date: 20140515
  Serious: Yes (Other)
  Sender: FDA-Public Use
  Company Number: CA-GLAXOSMITHKLINE-A1036200A

PATIENT
  Age: 38 Year
  Sex: Female

DRUGS (1)
  1. AVAMYS [Suspect]
     Indication: NASAL CONGESTION
     Dosage: 4SPR PER DAY
     Route: 045
     Dates: start: 20130716

REACTIONS (4)
  - Erythema [Recovered/Resolved]
  - Respiratory disorder [Recovered/Resolved]
  - Throat irritation [Recovered/Resolved]
  - Oropharyngeal pain [Recovered/Resolved]
